FAERS Safety Report 17855210 (Version 1)
Quarter: 2020Q2

REPORT INFORMATION
  Report Type: Report from Study
  Country: TH (occurrence: TH)
  Receive Date: 20200603
  Receipt Date: 20200603
  Transmission Date: 20200714
  Serious: Yes (Death)
  Sender: FDA-Public Use
  Company Number: NVSC2019TH018693

PATIENT
  Age: 74 Year
  Sex: Female

DRUGS (1)
  1. ENTRESTO [Suspect]
     Active Substance: SACUBITRIL\VALSARTAN
     Indication: CARDIAC FAILURE
     Dosage: 0.5 DF, (50 MG HALF TAB), BID
     Route: 048

REACTIONS (12)
  - Chronic kidney disease [Fatal]
  - Vomiting [Fatal]
  - Blood urine present [Fatal]
  - Chest discomfort [Fatal]
  - Blood glucose decreased [Fatal]
  - Prescribed underdose [Unknown]
  - Oedema peripheral [Fatal]
  - Wrong technique in product usage process [Unknown]
  - Product prescribing error [Unknown]
  - Eating disorder [Fatal]
  - Dyspnoea [Fatal]
  - Shock [Fatal]

NARRATIVE: CASE EVENT DATE: 20191208
